FAERS Safety Report 6138260-1 (Version None)
Quarter: 2009Q1

REPORT INFORMATION
  Report Type: 
  Country: None (occurrence: None)
  Receive Date: 20090331
  Receipt Date: 20090320
  Transmission Date: 20090719
  Serious: Yes (Death)
  Sender: FDA-Public Use
  Company Number: B0565154A

PATIENT
  Sex: Male
  Weight: 76.5 kg

DRUGS (2)
  1. AVANDAMET [Suspect]
     Route: 065
     Dates: start: 20070223
  2. METFORMIN HCL [Concomitant]
     Dates: start: 20040323

REACTIONS (3)
  - CHEST PAIN [None]
  - CIRCULATORY COLLAPSE [None]
  - MYOCARDIAL INFARCTION [None]
